FAERS Safety Report 13369427 (Version 1)
Quarter: 2017Q1

REPORT INFORMATION
  Report Type: Spontaneous
  Country: FR (occurrence: FR)
  Receive Date: 20170324
  Receipt Date: 20170324
  Transmission Date: 20170429
  Serious: Yes (Hospitalization)
  Sender: FDA-Public Use
  Company Number: FR-ASTRAZENECA-2017SE30026

PATIENT
  Age: 25004 Day
  Sex: Female

DRUGS (13)
  1. SERESTA [Suspect]
     Active Substance: OXAZEPAM
     Dosage: SINGLE DOSE
     Route: 048
     Dates: start: 20170217, end: 20170217
  2. INEXIUM [Suspect]
     Active Substance: ESOMEPRAZOLE
     Dosage: 240.0MG ONCE/SINGLE ADMINISTRATION
     Route: 048
     Dates: start: 20170217, end: 20170217
  3. FLIXONASE [Concomitant]
     Active Substance: FLUTICASONE PROPIONATE
  4. LEVOTHYROX [Concomitant]
     Active Substance: LEVOTHYROXINE
  5. SINGULAIR [Concomitant]
     Active Substance: MONTELUKAST SODIUM
  6. LAROXYL [Suspect]
     Active Substance: AMITRIPTYLINE
     Dosage: 750.0MG ONCE/SINGLE ADMINISTRATION
     Route: 048
     Dates: start: 20170217, end: 20170217
  7. UVEDOSE [Concomitant]
     Active Substance: CHOLECALCIFEROL
  8. FENOFIBRATE. [Concomitant]
     Active Substance: FENOFIBRATE
  9. PYOSTACINE [Concomitant]
     Active Substance: PRISTINAMYCIN
     Route: 048
  10. STILNOX [Suspect]
     Active Substance: ZOLPIDEM TARTRATE
     Dosage: 140.0MG ONCE/SINGLE ADMINISTRATION
     Route: 048
     Dates: start: 20170217, end: 20170217
  11. ALMOGRAN [Concomitant]
     Active Substance: ALMOTRIPTAN MALATE
  12. HYDROCORTISONE. [Concomitant]
     Active Substance: HYDROCORTISONE
  13. PARACETAMOL [Concomitant]
     Active Substance: ACETAMINOPHEN
     Route: 048

REACTIONS (4)
  - Loss of consciousness [Recovered/Resolved]
  - Vomiting [Recovered/Resolved]
  - Overdose [Unknown]
  - Tachycardia [Recovered/Resolved]

NARRATIVE: CASE EVENT DATE: 20170217
